FAERS Safety Report 21759356 (Version 1)
Quarter: 2022Q4

REPORT INFORMATION
  Report Type: Spontaneous
  Country: DE (occurrence: DE)
  Receive Date: 20221221
  Receipt Date: 20221221
  Transmission Date: 20230112
  Serious: Yes (Other)
  Sender: FDA-Public Use
  Company Number: DE-ROCHE-3229655

PATIENT
  Sex: Male

DRUGS (8)
  1. BENDAMUSTINE HYDROCHLORIDE [Suspect]
     Active Substance: BENDAMUSTINE HYDROCHLORIDE
     Indication: Follicular lymphoma
     Route: 042
     Dates: start: 20210601
  2. CYCLOPHOSPHAMIDE [Suspect]
     Active Substance: CYCLOPHOSPHAMIDE
     Indication: Diffuse large B-cell lymphoma
     Dosage: .(R-CHOP)
     Route: 065
     Dates: start: 20210901, end: 20211231
  3. DOXORUBICIN HYDROCHLORIDE [Suspect]
     Active Substance: DOXORUBICIN HYDROCHLORIDE
     Indication: Diffuse large B-cell lymphoma
     Dosage: (R-CHOP)
     Route: 065
     Dates: start: 20210901, end: 20211231
  4. PREDNISONE [Suspect]
     Active Substance: PREDNISONE
     Indication: Diffuse large B-cell lymphoma
     Dosage: (R-CHOP)
     Route: 065
     Dates: start: 20210901, end: 20211231
  5. VINCRISTINE SULFATE [Suspect]
     Active Substance: VINCRISTINE SULFATE
     Indication: Diffuse large B-cell lymphoma
     Dosage: (R-CHOP)
     Route: 065
     Dates: start: 20210901, end: 20211231
  6. RITUXIMAB [Suspect]
     Active Substance: RITUXIMAB
     Indication: Diffuse large B-cell lymphoma
     Dosage: R-CHOP)
     Route: 042
     Dates: start: 20210901, end: 20211231
  7. GAZYVA [Suspect]
     Active Substance: OBINUTUZUMAB
     Indication: Follicular lymphoma
     Dosage: WITH BENDAMUSTIN HYDROCHLORIDE)
     Route: 042
     Dates: start: 20210601, end: 20210801
  8. POLIVY [Suspect]
     Active Substance: POLATUZUMAB VEDOTIN-PIIQ
     Indication: Diffuse large B-cell lymphoma
     Dosage: (RITUXIMAB BIOSIMILAR + POLIVY)
     Route: 065
     Dates: start: 20220525, end: 20220928

REACTIONS (1)
  - Malignant neoplasm progression [Not Recovered/Not Resolved]
